FAERS Safety Report 12778511 (Version 1)
Quarter: 2016Q3

REPORT INFORMATION
  Report Type: Spontaneous
  Country: US (occurrence: US)
  Receive Date: 20160926
  Receipt Date: 20160926
  Transmission Date: 20161109
  Serious: Yes (Other)
  Sender: FDA-Public Use
  Company Number: US-ROCHE-1834019

PATIENT
  Age: 90 Year
  Sex: Male

DRUGS (8)
  1. ERIVEDGE [Suspect]
     Active Substance: VISMODEGIB
     Indication: BASAL CELL CARCINOMA
     Dosage: 13/JUL DRUG WAS STOPPED
     Route: 065
  2. ASPIRIN. [Concomitant]
     Active Substance: ASPIRIN
  3. OMEGA 3 [Concomitant]
     Active Substance: OMEGA-3 FATTY ACIDS
  4. METOPROLOL. [Concomitant]
     Active Substance: METOPROLOL
  5. RED RICE YEAST [Concomitant]
     Active Substance: DIETARY SUPPLEMENT
  6. TAMSULOSIN [Concomitant]
     Active Substance: TAMSULOSIN
  7. SAW PALMETTO [Concomitant]
     Active Substance: SAW PALMETTO
  8. PLAVIX [Concomitant]
     Active Substance: CLOPIDOGREL BISULFATE

REACTIONS (4)
  - Cerebrovascular accident [Unknown]
  - Alopecia [Not Recovered/Not Resolved]
  - Blindness [Unknown]
  - Loss of libido [Not Recovered/Not Resolved]
